FAERS Safety Report 5927788-2 (Version None)
Quarter: 2008Q4

REPORT INFORMATION
  Report Type: 
  Country: None (occurrence: None)
  Receive Date: 20081023
  Receipt Date: 20081013
  Transmission Date: 20090506
  Serious: Yes (Hospitalization)
  Sender: FDA-Public Use
  Company Number: FR-WYE-H06377608

PATIENT
  Sex: Male

DRUGS (11)
  1. INIPOMP [Suspect]
     Indication: GASTROOESOPHAGEAL REFLUX DISEASE
     Route: 048
     Dates: start: 20080603, end: 20080606
  2. BRICANYL [Concomitant]
     Indication: DYSPNOEA
     Dosage: UNKNOWN
     Route: 055
  3. COZAAR [Concomitant]
     Indication: HYPERTENSION
     Route: 048
     Dates: start: 20080603, end: 20080618
  4. AMLOD [Concomitant]
     Indication: HYPERTENSION
     Route: 065
     Dates: start: 20080603, end: 20080612
  5. DOLIPRANE [Concomitant]
     Indication: PAIN
     Route: 048
     Dates: start: 20080605, end: 20080618
  6. ROCEPHIN [Suspect]
     Route: 042
     Dates: end: 20080606
  7. BRICANYL [Concomitant]
     Dosage: UNKNOWN
     Route: 055
  8. KARDEGIC [Concomitant]
     Indication: THROMBOSIS
     Route: 048
     Dates: start: 20080604, end: 20080606
  9. TAHOR [Concomitant]
     Indication: HYPERCHOLESTEROLAEMIA
     Route: 048
     Dates: start: 20080604, end: 20080612
  10. ROVAMYCINE [Suspect]
     Route: 048
     Dates: start: 20080603, end: 20080606
  11. AMOXICILLIN + CLAVULANATE POTASSIUM [Suspect]
     Route: 048
     Dates: start: 20080603, end: 20080604

REACTIONS (3)
  - MOUTH HAEMORRHAGE [None]
  - MUCOSA VESICLE [None]
  - THROMBOCYTOPENIA [None]
